FAERS Safety Report 24934095 (Version 1)
Quarter: 2025Q1

REPORT INFORMATION
  Report Type: Report from Study
  Country: CA (occurrence: CA)
  Receive Date: 20250206
  Receipt Date: 20250206
  Transmission Date: 20250408
  Serious: Yes (Other)
  Sender: EXELIXIS
  Company Number: CA-IPSEN Group, Research and Development-2024-10988

PATIENT
  Sex: Male

DRUGS (13)
  1. CABOMETYX [Suspect]
     Active Substance: CABOZANTINIB S-MALATE
     Indication: Renal cell carcinoma
     Dosage: 60 MG, QD
     Route: 048
     Dates: start: 20230407
  2. PANTOPRAZOLE [Concomitant]
     Active Substance: PANTOPRAZOLE
  3. D4000 [Concomitant]
  4. ATENOLOL [Concomitant]
     Active Substance: ATENOLOL
  5. PREDNISONE [Concomitant]
     Active Substance: PREDNISONE
  6. SYNTHROID [Concomitant]
     Active Substance: LEVOTHYROXINE SODIUM
  7. PRAVASTATIN [Concomitant]
     Active Substance: PRAVASTATIN
  8. SULFATRIM [Concomitant]
     Active Substance: SULFAMETHOXAZOLE\TRIMETHOPRIM
  9. RIVA ALENDRONATE [Concomitant]
  10. EPIPEN [Concomitant]
     Active Substance: EPINEPHRINE
  11. SODIUM PHOSPHATE [Concomitant]
     Active Substance: SODIUM PHOSPHATE
  12. CORTEF [Concomitant]
     Active Substance: HYDROCORTISONE
  13. DEXAMETHASONE [Concomitant]
     Active Substance: DEXAMETHASONE

REACTIONS (1)
  - Malignant neoplasm progression [Unknown]
